FAERS Safety Report 7152348-8 (Version None)
Quarter: 2010Q4

REPORT INFORMATION
  Report Type: 
  Country: None (occurrence: None)
  Receive Date: 20101123
  Receipt Date: 20101109
  Transmission Date: 20110411
  Serious: Yes (Hospitalization)
  Sender: FDA-Public Use
  Company Number: DSM-2010-01635

PATIENT
  Age: 77 Year
  Sex: Female

DRUGS (11)
  1. OLMESARTAN MEDOXOMIL [Suspect]
     Indication: HYPERTENSION
     Dosage: 20 MG, ORAL
     Route: 048
     Dates: start: 20090101, end: 20100801
  2. ACYCLOVIR [Suspect]
     Indication: HERPES ZOSTER
     Dosage: 800 MG, ORAL
     Route: 048
     Dates: start: 20100719, end: 20100801
  3. LASIX [Suspect]
     Indication: MYOCARDIAL ISCHAEMIA
     Dosage: 12.5 MG, ORAL
     Route: 048
     Dates: start: 20090101, end: 20100801
  4. FENTANYL [Suspect]
     Indication: BONE PAIN
     Dosage: CUTANEOUS
     Route: 003
     Dates: start: 20090101, end: 20100801
  5. LYRICA [Suspect]
     Indication: NEURALGIA
     Dosage: 100 MG, ORAL
     Route: 048
     Dates: start: 20100719, end: 20100801
  6. COUMADIN [Concomitant]
  7. THEO-DUR (THEOPHYLLINE) (THEOPHYLLINE) [Concomitant]
  8. PANTOPRAZOLE SODIUM [Concomitant]
  9. ALLOPURINOL [Concomitant]
  10. NEURABEN (PYRIDOXINE HYDROCHLORIDE, CYANOCOBALAMIN, BENMETIAMINE) (PYR [Concomitant]
  11. ARIMIDEX (ANASTROZOLE) (ANASTROZOLE) [Concomitant]

REACTIONS (4)
  - INTERNATIONAL NORMALISED RATIO INCREASED [None]
  - OXYGEN SATURATION DECREASED [None]
  - RENAL FAILURE ACUTE [None]
  - SOPOR [None]
